FAERS Safety Report 4892693-X (Version None)
Quarter: 2006Q1

REPORT INFORMATION
  Report Type: 
  Country: None (occurrence: None)
  Receive Date: 20060126
  Receipt Date: 20051220
  Transmission Date: 20060701
  Serious: Yes (Hospitalization, Other)
  Sender: FDA-Public Use
  Company Number: FR-BRISTOL-MYERS SQUIBB COMPANY-13227236

PATIENT
  Age: 47 Year
  Sex: Male

DRUGS (3)
  1. ABILIFY [Suspect]
     Indication: BIPOLAR I DISORDER
     Dosage: DOSAGE: 10 MG DAILY 15-SEP-2005 TO 22-SEP-2005; 15 MG DAILY 23-SEP-2005 TO 27-SEP-2005
     Route: 048
     Dates: start: 20050915, end: 20050927
  2. LEPTICUR [Concomitant]
     Dates: start: 20050910
  3. RIVOTRIL [Concomitant]
     Dates: start: 20050922

REACTIONS (5)
  - ASTHENIA [None]
  - CONFUSIONAL STATE [None]
  - HYPERTHERMIA [None]
  - NEUROLEPTIC MALIGNANT SYNDROME [None]
  - PULSE ABNORMAL [None]
